FAERS Safety Report 9174753 (Version 1)
Quarter: 2013Q1

REPORT INFORMATION
  Report Type: Report from Study
  Country: BR (occurrence: BR)
  Receive Date: 20130320
  Receipt Date: 20130320
  Transmission Date: 20140127
  Serious: Yes (Hospitalization)
  Sender: FDA-Public Use
  Company Number: BR-ABBOTT-13P-020-1047177-00

PATIENT
  Sex: Female
  Weight: 63 kg

DRUGS (8)
  1. HUMIRA [Suspect]
     Indication: CROHN^S DISEASE
     Dosage: WEEK 0
     Route: 058
     Dates: start: 20090401, end: 20090414
  2. HUMIRA [Suspect]
     Dosage: WEEK 2
     Route: 058
     Dates: start: 20090414
  3. HUMIRA [Suspect]
     Route: 058
     Dates: end: 201002
  4. HUMIRA [Suspect]
     Route: 058
     Dates: start: 201104
  5. MESALAZINE [Concomitant]
     Indication: CROHN^S DISEASE
     Route: 048
     Dates: start: 2006
  6. AZATHIOPRINE [Concomitant]
     Indication: CROHN^S DISEASE
     Route: 048
     Dates: start: 201209
  7. CIPROFLOXACIN [Concomitant]
     Indication: CROHN^S DISEASE
     Route: 048
     Dates: start: 201202
  8. METRONIDAZOLE [Concomitant]

REACTIONS (6)
  - Intestinal fistula [Recovering/Resolving]
  - Crohn^s disease [Not Recovered/Not Resolved]
  - Abdominal discomfort [Recovered/Resolved]
  - Haemorrhage [Recovered/Resolved]
  - Weight decreased [Recovering/Resolving]
  - Gastrointestinal inflammation [Recovering/Resolving]
